FAERS Safety Report 16587529 (Version 1)
Quarter: 2019Q3

REPORT INFORMATION
  Report Type: Report from Study
  Country: FR (occurrence: FR)
  Receive Date: 20190717
  Receipt Date: 20190717
  Transmission Date: 20191004
  Serious: Yes (Death, Hospitalization)
  Sender: FDA-Public Use
  Company Number: FR-MYLANLABS-2019M1067325

PATIENT
  Age: 63 Year
  Sex: Female

DRUGS (16)
  1. LASILIX                            /00032601/ [Concomitant]
     Active Substance: FUROSEMIDE
     Indication: DIURETIC THERAPY
     Dosage: UNK
     Route: 048
     Dates: start: 2018
  2. FLUOROURACIL. [Suspect]
     Active Substance: FLUOROURACIL
     Dosage: 400 MILLIGRAM/SQ. METER
     Dates: start: 20180605
  3. DETICENE [Suspect]
     Active Substance: DACARBAZINE
     Indication: PANCREATIC NEUROENDOCRINE TUMOUR
     Dosage: 230 MILLIGRAM/SQ. METER, CYCLE
     Dates: start: 20180405
  4. SANDOSTATINE [Suspect]
     Active Substance: OCTREOTIDE ACETATE
     Indication: PRODUCT USED FOR UNKNOWN INDICATION
     Dosage: 20 MILLIGRAM, QD (20 MG, DAILY)
     Dates: start: 201110, end: 20181111
  5. PANTOPRAZOLE [Concomitant]
     Active Substance: PANTOPRAZOLE
     Indication: GASTROOESOPHAGEAL REFLUX PROPHYLAXIS
     Dosage: UNK
     Route: 048
     Dates: start: 2018
  6. LOVENOX [Concomitant]
     Active Substance: ENOXAPARIN SODIUM
     Indication: THROMBOSIS PROPHYLAXIS
     Dosage: UNK
  7. DETICENE [Suspect]
     Active Substance: DACARBAZINE
     Dosage: 200 MILLIGRAM/SQ. METER
     Dates: start: 20180605
  8. LUTATHERA [Suspect]
     Active Substance: LUTETIUM OXODOTREOTIDE LU-177
     Indication: PRODUCT USED FOR UNKNOWN INDICATION
     Dosage: 7.4 GIGABECQUEREL, TOTAL (7.4 GBQ, SINGLE)
     Dates: start: 20181116, end: 20181116
  9. HYDROCORTISONE. [Concomitant]
     Active Substance: HYDROCORTISONE
     Indication: SUBILEUS
     Dosage: UNK
     Route: 048
     Dates: start: 2018
  10. FLUOROURACIL. [Suspect]
     Active Substance: FLUOROURACIL
     Indication: PANCREATIC NEUROENDOCRINE TUMOUR
     Dosage: 470 MILLIGRAM/SQ. METER, CYCLE (470 MG/M2, CYCLIC EVERY 28 DAYS)
     Dates: start: 20180405
  11. FLUOROURACIL. [Suspect]
     Active Substance: FLUOROURACIL
     Dosage: UNK
     Dates: end: 20180918
  12. DETICENE [Suspect]
     Active Substance: DACARBAZINE
     Dosage: 200 MILLIGRAM/SQ. METER
     Dates: start: 20180701
  13. LOVENOX [Concomitant]
     Active Substance: ENOXAPARIN SODIUM
     Indication: ANTICOAGULANT THERAPY
     Dosage: UNK
     Route: 058
     Dates: start: 2018
  14. FLUOROURACIL. [Suspect]
     Active Substance: FLUOROURACIL
     Dosage: 400 MILLIGRAM/SQ. METER
     Dates: start: 20180701
  15. DETICENE [Suspect]
     Active Substance: DACARBAZINE
     Dosage: UNK
     Dates: end: 20180918
  16. ZOPHREN                            /00955302/ [Concomitant]
     Active Substance: ONDANSETRON
     Indication: PROPHYLAXIS OF NAUSEA AND VOMITING
     Dosage: UNK
     Route: 042
     Dates: start: 2018

REACTIONS (3)
  - Neoplasm progression [Fatal]
  - Asthenia [Recovering/Resolving]
  - Vascular device infection [Recovered/Resolved]

NARRATIVE: CASE EVENT DATE: 201805
